FAERS Safety Report 5209322-8 (Version None)
Quarter: 2006Q4

REPORT INFORMATION
  Report Type: 
  Country: None (occurrence: None)
  Receive Date: 20061101
  Receipt Date: 20061024
  Transmission Date: 20070319
  Serious: No
  Sender: FDA-Public Use
  Company Number: SPV1-2006-01321

PATIENT
  Age: 48 Year
  Sex: Female
  Weight: 49.9 kg

DRUGS (3)
  1. FOSRENOL [Suspect]
     Indication: DRUG USE FOR UNKNOWN INDICATION
     Dosage: 2 TABS, 3X/DAY: TID WITH MEAL
     Dates: start: 20061001
  2. WELLBUTRIN [Concomitant]
  3. INSULIN [Concomitant]

REACTIONS (2)
  - NAUSEA [None]
  - VOMITING [None]
